FAERS Safety Report 7226868-1 (Version None)
Quarter: 2011Q1

REPORT INFORMATION
  Report Type: 
  Country: None (occurrence: None)
  Receive Date: 20110105
  Receipt Date: 20101229
  Transmission Date: 20110831
  Serious: Yes (Hospitalization, Other)
  Sender: FDA-Public Use
  Company Number: 2010SP042284

PATIENT
  Age: 39 Year
  Sex: Female

DRUGS (4)
  1. LOPRESSOR [Suspect]
     Indication: PRODUCT USED FOR UNKNOWN INDICATION
  2. NUVARING [Suspect]
     Indication: CONTRACEPTION
     Dates: start: 20050101, end: 20070819
  3. DECONGESTANT [Suspect]
     Indication: RHINITIS
  4. PROZAC [Concomitant]

REACTIONS (27)
  - RHINITIS [None]
  - PHLEBITIS [None]
  - TREMOR [None]
  - HYPERTENSION [None]
  - UPPER RESPIRATORY TRACT INFECTION [None]
  - DRUG INTERACTION [None]
  - BLOOD CHOLESTEROL INCREASED [None]
  - CONJUNCTIVITIS [None]
  - RADICULOPATHY [None]
  - DYSFUNCTIONAL UTERINE BLEEDING [None]
  - BACK PAIN [None]
  - URTICARIA [None]
  - SINUS DISORDER [None]
  - HYPOAESTHESIA [None]
  - URINARY TRACT INFECTION [None]
  - DRY SKIN [None]
  - CAROTID BRUIT [None]
  - DEEP VEIN THROMBOSIS [None]
  - NECK PAIN [None]
  - MULTIPLE ALLERGIES [None]
  - ALLERGY TO ARTHROPOD BITE [None]
  - SINUSITIS [None]
  - ASTHMA [None]
  - NEURALGIA [None]
  - SKIN FISSURES [None]
  - TACHYCARDIA [None]
  - HOT FLUSH [None]
